FAERS Safety Report 4382705-4 (Version None)
Quarter: 2004Q2

REPORT INFORMATION
  Report Type: 
  Country: None (occurrence: None)
  Receive Date: 20040616
  Receipt Date: 20040608
  Transmission Date: 20050107
  Serious: Yes (Death)
  Sender: FDA-Public Use
  Company Number: US-2004-026612

PATIENT
  Age: 63 Year
  Sex: Male

DRUGS (3)
  1. MAGNEVIST [Suspect]
     Indication: NUCLEAR MAGNETIC RESONANCE IMAGING
     Dosage: 18 ML, 1 DOSE, INTRAVENOUS
     Route: 042
     Dates: start: 20040604, end: 20040604
  2. BENACORT [Concomitant]
  3. TOPROL-XL [Concomitant]

REACTIONS (8)
  - CARDIAC ARREST [None]
  - CONTRAST MEDIA REACTION [None]
  - HYPERHIDROSIS [None]
  - PARAESTHESIA [None]
  - POST PROCEDURAL COMPLICATION [None]
  - RESPIRATORY FAILURE [None]
  - SINUS BRADYCARDIA [None]
  - VOMITING [None]
